FAERS Safety Report 20543744 (Version 2)
Quarter: 2022Q1

REPORT INFORMATION
  Report Type: Spontaneous
  Country: GB (occurrence: GB)
  Receive Date: 20220303
  Receipt Date: 20220322
  Transmission Date: 20220423
  Serious: Yes (Other)
  Sender: FDA-Public Use
  Company Number: GB-MHRA-TPP9178345C4205012YC1645090793014

PATIENT
  Age: 51 Year
  Sex: Female
  Weight: 120 kg

DRUGS (14)
  1. IBUPROFEN [Suspect]
     Active Substance: IBUPROFEN
     Indication: Product used for unknown indication
     Dosage: 400 MILLIGRAM
     Route: 065
     Dates: start: 20220217
  2. AMITRIPTYLINE HYDROCHLORIDE [Concomitant]
     Active Substance: AMITRIPTYLINE HYDROCHLORIDE
     Indication: Product used for unknown indication
     Dosage: 1 DOSAGE FORM, QD (AT NIGHT)
     Route: 065
     Dates: start: 20220207
  3. AMOXICILLIN [Concomitant]
     Active Substance: AMOXICILLIN
     Indication: Product used for unknown indication
     Dosage: 3 DOSAGE FORM, ONCE A DAY (1 DOSAGE FORM, TID)
     Route: 065
     Dates: start: 20211223
  4. BENZYDAMINE HYDROCHLORIDE [Concomitant]
     Active Substance: BENZYDAMINE HYDROCHLORIDE
     Indication: Product used for unknown indication
     Dosage: 1 DOSAGE FORM (1 DOSAGE FORM, Q3H)
     Route: 065
     Dates: start: 20211223
  5. CITALOPRAM [Concomitant]
     Active Substance: CITALOPRAM HYDROBROMIDE
     Indication: Product used for unknown indication
     Dosage: 1 DOSAGE FORM, ONCE A DAY (1 DF, QD)
     Route: 065
     Dates: start: 20220120, end: 20220207
  6. CITALOPRAM [Concomitant]
     Active Substance: CITALOPRAM HYDROBROMIDE
     Indication: Product used for unknown indication
  7. CARBOXYMETHYLCELLULOSE [Concomitant]
     Active Substance: CARBOXYMETHYLCELLULOSE
     Indication: Product used for unknown indication
     Dosage: 1 GTT DROPS, QID (LEFT EYE)
     Route: 047
     Dates: start: 20200728
  8. HYDROCORTISONE [Concomitant]
     Active Substance: HYDROCORTISONE
     Indication: Product used for unknown indication
     Dosage: UNK (1-2 TIMES PER DAY)
     Route: 065
     Dates: start: 20211125
  9. LANSOPRAZOLE [Concomitant]
     Active Substance: LANSOPRAZOLE
     Indication: Product used for unknown indication
     Dosage: 1 DOSAGE FORM, TWO TIMES A DAY (1 DOSAGE FORM, BID)
     Route: 065
     Dates: start: 20211103
  10. NITROFURANTOIN [Concomitant]
     Active Substance: NITROFURANTOIN
     Indication: Urinary tract infection
     Dosage: UNK  (LOWER UTI (WOMEN) (1ST LINE): TAKE ONE CAPSULE)
     Route: 065
     Dates: start: 20211202
  11. PENICILLIN V [Concomitant]
     Active Substance: PENICILLIN V
     Indication: Acute sinusitis
     Dosage: UNK (ACUTE SINUSITIS (1ST LINE): TAKE TWO TABLETS FO)
     Route: 065
     Dates: start: 20211214
  12. SERTRALINE [Concomitant]
     Active Substance: SERTRALINE HYDROCHLORIDE
     Indication: Product used for unknown indication
     Dosage: 1 DOSAGE FORM, ONCE A DAY (1 DF, QD)
     Route: 065
     Dates: start: 20220105
  13. TRULICITY [Concomitant]
     Active Substance: DULAGLUTIDE
     Indication: Product used for unknown indication
     Dosage: UNK UNK, AS DIRECTED (USE AS DIRECTED)
     Route: 065
     Dates: start: 20210809
  14. ACETAMINOPHEN\CODEINE PHOSPHATE [Concomitant]
     Active Substance: ACETAMINOPHEN\CODEINE PHOSPHATE
     Indication: Product used for unknown indication
     Dosage: 2 DOSAGE FORM, FOUR TIMES/DAY (DO NOT TAKE PARACETAMOL OR CODEINE WITH THIS MEDICATION)
     Route: 065
     Dates: start: 20220215

REACTIONS (1)
  - Wheezing [Recovered/Resolved]

NARRATIVE: CASE EVENT DATE: 20220217
